FAERS Safety Report 8375475-6 (Version None)
Quarter: 2012Q2

REPORT INFORMATION
  Report Type: 
  Country: None (occurrence: None)
  Receive Date: 20120522
  Receipt Date: 20120510
  Transmission Date: 20120825
  Serious: No
  Sender: FDA-Public Use
  Company Number: US-BIOGENIDEC-2012BI016586

PATIENT
  Age: 56 Year
  Sex: Female

DRUGS (2)
  1. AVONEX [Suspect]
     Indication: MULTIPLE SCLEROSIS
     Route: 030
     Dates: start: 19991001
  2. TYLENOL [Concomitant]
     Indication: PREMEDICATION
     Route: 048
     Dates: start: 19990101

REACTIONS (7)
  - INFLUENZA LIKE ILLNESS [None]
  - MOBILITY DECREASED [None]
  - COORDINATION ABNORMAL [None]
  - FATIGUE [None]
  - OEDEMA PERIPHERAL [None]
  - UNDERDOSE [None]
  - PYREXIA [None]
